FAERS Safety Report 16999020 (Version 2)
Quarter: 2020Q1

REPORT INFORMATION
  Report Type: Report from Study
  Country: CO (occurrence: CO)
  Receive Date: 20191106
  Receipt Date: 20200103
  Transmission Date: 20200409
  Serious: Yes (Disabling)
  Sender: FDA-Public Use
  Company Number: CO-JNJFOC-20190937837

PATIENT
  Age: 88 Year
  Sex: Male
  Weight: 69 kg

DRUGS (2)
  1. ZYTIGA [Suspect]
     Active Substance: ABIRATERONE ACETATE
     Indication: PROSTATE CANCER METASTATIC
     Route: 048
     Dates: start: 20190921, end: 201910
  2. PREDNISOLONE. [Concomitant]
     Active Substance: PREDNISOLONE
     Indication: PROSTATE CANCER METASTATIC
     Route: 048
     Dates: start: 20190921, end: 201910

REACTIONS (12)
  - Fall [Recovering/Resolving]
  - Musculoskeletal stiffness [Not Recovered/Not Resolved]
  - Feeling abnormal [Not Recovered/Not Resolved]
  - Weight decreased [Recovering/Resolving]
  - Hypersomnia [Not Recovered/Not Resolved]
  - Depressed mood [Not Recovered/Not Resolved]
  - Insomnia [Recovering/Resolving]
  - Immobile [Recovering/Resolving]
  - Dyspnoea [Recovering/Resolving]
  - Influenza [Recovering/Resolving]
  - Abdominal pain upper [Not Recovered/Not Resolved]
  - Eating disorder [Not Recovered/Not Resolved]

NARRATIVE: CASE EVENT DATE: 201909
